FAERS Safety Report 9614927 (Version 2)
Quarter: 2013Q4

REPORT INFORMATION
  Report Type: Spontaneous
  Country: US (occurrence: US)
  Receive Date: 20131011
  Receipt Date: 20131030
  Transmission Date: 20140711
  Serious: No
  Sender: FDA-Public Use
  Company Number: US-PFIZER INC-2013290991

PATIENT
  Age: 66 Year
  Sex: Male

DRUGS (8)
  1. SUTENT [Suspect]
     Indication: RENAL CANCER
     Dosage: 50 MG, CYCLIC (DAILY 28 DAYS, 14 DAYS OFF)
     Route: 048
     Dates: start: 20130728
  2. METOPROLOL [Concomitant]
     Dosage: UNK
  3. LISINOPRIL [Concomitant]
     Dosage: UNK
  4. PLAVIX [Concomitant]
     Dosage: UNK
  5. ATORVASTATIN [Concomitant]
     Dosage: UNK
  6. LEVOTHYROXINE [Concomitant]
     Dosage: UNK
  7. VITAMIN B [Concomitant]
     Dosage: UNK
  8. VITAMIN C [Concomitant]
     Dosage: UNK

REACTIONS (2)
  - Hyperaesthesia [Unknown]
  - Mood swings [Unknown]
